FAERS Safety Report 24335797 (Version 1)
Quarter: 2024Q3

REPORT INFORMATION
  Report Type: Report from Study
  Country: US (occurrence: US)
  Receive Date: 20240919
  Receipt Date: 20240919
  Transmission Date: 20241017
  Serious: Yes (Hospitalization, Other)
  Sender: ABBVIE
  Company Number: US-ABBVIE-5926917

PATIENT
  Sex: Male

DRUGS (1)
  1. VENCLEXTA [Suspect]
     Active Substance: VENETOCLAX
     Indication: Mantle cell lymphoma
     Route: 048
     Dates: start: 202408

REACTIONS (4)
  - Intestinal obstruction [Recovering/Resolving]
  - Urticaria [Unknown]
  - Pruritus [Unknown]
  - Discomfort [Unknown]

NARRATIVE: CASE EVENT DATE: 20240101
